FAERS Safety Report 13685227 (Version 1)
Quarter: 2017Q2

REPORT INFORMATION
  Report Type: Spontaneous
  Country: US (occurrence: US)
  Receive Date: 20170623
  Receipt Date: 20170623
  Transmission Date: 20170830
  Serious: No
  Sender: FDA-Public Use
  Company Number: US-GLAXOSMITHKLINE-US2017GSK096089

PATIENT
  Age: 62 Year
  Sex: Female

DRUGS (1)
  1. BENLYSTA [Suspect]
     Active Substance: BELIMUMAB
     Indication: SYSTEMIC LUPUS ERYTHEMATOSUS
     Route: 042

REACTIONS (7)
  - Influenza like illness [Unknown]
  - Drug dose omission [Unknown]
  - Ill-defined disorder [Unknown]
  - Muscle atrophy [Unknown]
  - Dizziness [Unknown]
  - Fatigue [Unknown]
  - Surgery [Unknown]

NARRATIVE: CASE EVENT DATE: 20170615
